FAERS Safety Report 5109036-9 (Version None)
Quarter: 2006Q3

REPORT INFORMATION
  Report Type: 
  Country: None (occurrence: None)
  Receive Date: 20060918
  Receipt Date: 20060911
  Transmission Date: 20061208
  Serious: Yes (Death, Other)
  Sender: FDA-Public Use
  Company Number: LTI2006A00201

PATIENT
  Age: 80 Year
  Sex: Male

DRUGS (3)
  1. ENANTONE LP 11.25 MG PREP INJ            (LEUPROLIDE ACETATE) [Suspect]
     Indication: PROSTATE CANCER
     Dosage: 11.25 MG (11.25 MG, 1 IN 3 M) INTRAMUSCULAR
     Route: 030
     Dates: start: 20060515
  2. CLASTOBAN            (CLODRONATE DISODIUM) [Suspect]
     Dosage: 1600 MG (800 MG, 2 IN 1 D) ORAL
     Route: 048
     Dates: start: 20060515, end: 20060706
  3. ANANDRON (NILUTAMIDE) (TABLETS) [Suspect]
     Dosage: 150 MG (150 MG, 1 IN 1 D) ORAL
     Route: 048
     Dates: start: 20060515, end: 20060711

REACTIONS (6)
  - ASTHENIA [None]
  - CONDITION AGGRAVATED [None]
  - CONFUSIONAL STATE [None]
  - HYPOCALCAEMIA [None]
  - HYPOKALAEMIA [None]
  - PROSTATE CANCER [None]
